FAERS Safety Report 4411786-4 (Version None)
Quarter: 2004Q3

REPORT INFORMATION
  Report Type: 
  Country: None (occurrence: None)
  Receive Date: 20040730
  Receipt Date: 20040715
  Transmission Date: 20050211
  Serious: Yes (Other)
  Sender: FDA-Public Use
  Company Number: 200412429JP

PATIENT
  Age: 66 Year
  Sex: Male

DRUGS (2)
  1. LASIX [Suspect]
     Route: 048
     Dates: start: 20021201, end: 20030301
  2. AMARYL [Suspect]
     Route: 048
     Dates: start: 20030101, end: 20030201

REACTIONS (1)
  - LIVER DISORDER [None]
